FAERS Safety Report 13455636 (Version 1)
Quarter: 2017Q2

REPORT INFORMATION
  Report Type: Spontaneous
  Country: US (occurrence: US)
  Receive Date: 20170418
  Receipt Date: 20170418
  Transmission Date: 20170830
  Serious: Yes (Other)
  Sender: FDA-Public Use
  Company Number: None

PATIENT
  Age: 44 Year
  Sex: Female
  Weight: 90 kg

DRUGS (9)
  1. BENZONATATE. [Concomitant]
     Active Substance: BENZONATATE
  2. GABAPENTIN. [Suspect]
     Active Substance: GABAPENTIN
     Indication: ARTHRALGIA
     Dosage: ?          QUANTITY:6 CAPSULE(S);OTHER FREQUENCY:UP TO 600MG QHS;?
     Route: 048
     Dates: start: 20170121, end: 20170415
  3. TUSSIN [Concomitant]
     Active Substance: GUAIFENESIN
  4. SPIRONOLACTONE. [Concomitant]
     Active Substance: SPIRONOLACTONE
  5. IBUPROFEN. [Concomitant]
     Active Substance: IBUPROFEN
  6. TYLENOL [Concomitant]
     Active Substance: ACETAMINOPHEN
  7. ADVAIR HFA [Concomitant]
     Active Substance: FLUTICASONE PROPIONATE\SALMETEROL XINAFOATE
  8. ALBUTEROL. [Concomitant]
     Active Substance: ALBUTEROL
  9. WOMEN^S MULTIVITAMIN [Concomitant]

REACTIONS (6)
  - Temperature intolerance [None]
  - Rash pruritic [None]
  - Hyperhidrosis [None]
  - Drug hypersensitivity [None]
  - Fine motor skill dysfunction [None]
  - Feeling hot [None]

NARRATIVE: CASE EVENT DATE: 20170401
